FAERS Safety Report 5598194-8 (Version None)
Quarter: 2008Q1

REPORT INFORMATION
  Report Type: 
  Country: None (occurrence: None)
  Receive Date: 20080122
  Receipt Date: 20080114
  Transmission Date: 20080703
  Serious: Yes (Hospitalization)
  Sender: FDA-Public Use
  Company Number: PHNU2008DE00561

PATIENT
  Age: 75 Year
  Sex: Female

DRUGS (1)
  1. DIOVAN [Suspect]
     Route: 048
     Dates: start: 20060101

REACTIONS (2)
  - EPISTAXIS [None]
  - SCLEROTHERAPY [None]
